FAERS Safety Report 13894556 (Version 1)
Quarter: 2017Q3

REPORT INFORMATION
  Report Type: Spontaneous
  Country: US (occurrence: US)
  Receive Date: 20170817
  Receipt Date: 20170817
  Transmission Date: 20171127
  Serious: Yes (Life-Threatening)
  Sender: FDA-Public Use
  Company Number: None

PATIENT
  Age: 24 Year
  Sex: Male
  Weight: 62 kg

DRUGS (2)
  1. FOSAPREPITANT [Suspect]
     Active Substance: FOSAPREPITANT
     Indication: NAUSEA
     Route: 042
     Dates: start: 20170817
  2. FOSAPREPITANT [Concomitant]
     Active Substance: FOSAPREPITANT

REACTIONS (7)
  - Tachycardia [None]
  - Flushing [None]
  - Nausea [None]
  - Vomiting [None]
  - Unresponsive to stimuli [None]
  - Hypotension [None]
  - Pruritus [None]

NARRATIVE: CASE EVENT DATE: 20170817
